FAERS Safety Report 18564991 (Version 1)
Quarter: 2020Q4

REPORT INFORMATION
  Report Type: Other
  Country: DE (occurrence: DE)
  Receive Date: 20201201
  Receipt Date: 20201201
  Transmission Date: 20210114
  Serious: Yes (Life-Threatening, Hospitalization)
  Sender: FDA-Public Use
  Company Number: DE-INCYTE CORPORATION-2020IN011489

PATIENT

DRUGS (1)
  1. JAKAVI [Suspect]
     Active Substance: RUXOLITINIB
     Indication: POLYCYTHAEMIA VERA
     Dosage: 20 MG, QD (DAILY DOSE: 20 MG MILLGRAM(S) EVERY DAYS 2 SEPARATED DOSES) (WEITERE ANWENDUNG 04.2017-05
     Route: 048
     Dates: start: 201708, end: 202008

REACTIONS (1)
  - Breast cancer metastatic [Unknown]

NARRATIVE: CASE EVENT DATE: 20200911
